FAERS Safety Report 15629026 (Version 1)
Quarter: 2018Q4

REPORT INFORMATION
  Report Type: Spontaneous
  Country: US (occurrence: US)
  Receive Date: 20181116
  Receipt Date: 20181116
  Transmission Date: 20190205
  Serious: Yes (Hospitalization, Other)
  Sender: FDA-Public Use
  Company Number: US-009507513-1811USA006218

PATIENT
  Sex: Female

DRUGS (2)
  1. ENHANCER [Suspect]
     Active Substance: BARIUM SULFATE
     Dosage: THIRD TREATMENT
     Dates: end: 2018
  2. KEYTRUDA [Suspect]
     Active Substance: PEMBROLIZUMAB
     Dosage: THIRD TREATMENT
     Dates: end: 201809

REACTIONS (3)
  - Spinal fracture [Not Recovered/Not Resolved]
  - Adverse event [Not Recovered/Not Resolved]
  - Hepatic enzyme increased [Recovered/Resolved]

NARRATIVE: CASE EVENT DATE: 2018
